FAERS Safety Report 12689249 (Version 1)
Quarter: 2016Q3

REPORT INFORMATION
  Report Type: Report from Study
  Country: FR (occurrence: FR)
  Receive Date: 20160826
  Receipt Date: 20160826
  Transmission Date: 20161109
  Serious: Yes (Other)
  Sender: FDA-Public Use
  Company Number: FR-ASTELLAS-2016US025066

PATIENT
  Age: 10 Year

DRUGS (1)
  1. TACROLIMUS. [Suspect]
     Active Substance: TACROLIMUS
     Indication: CROHN^S DISEASE
     Dosage: 0.3 MG/KG, ONCE DAILY
     Route: 048
     Dates: start: 20140301, end: 20160701

REACTIONS (3)
  - Renal disorder [Recovering/Resolving]
  - Off label use [Unknown]
  - Nephropathy toxic [Unknown]

NARRATIVE: CASE EVENT DATE: 20160408
